FAERS Safety Report 8531881-8 (Version None)
Quarter: 2012Q3

REPORT INFORMATION
  Report Type: 
  Country: None (occurrence: None)
  Receive Date: 20120723
  Receipt Date: 20120712
  Transmission Date: 20120928
  Serious: Yes (Other)
  Sender: FDA-Public Use
  Company Number: US-PERRIGO-12US006083

PATIENT
  Sex: Female
  Weight: 66.667 kg

DRUGS (6)
  1. ACETAMINOPHEN [Suspect]
     Indication: INSOMNIA
  2. CARDIZEM [Concomitant]
     Indication: ARRHYTHMIA
     Dosage: UNKNOWN, UNKNOWN
     Route: 048
  3. ACETAMINOPHEN [Suspect]
     Indication: HEADACHE
     Dosage: 500 MG, PRN
     Route: 048
     Dates: start: 20120601, end: 20120711
  4. SYNTHROID [Concomitant]
     Indication: HYPOTHYROIDISM
     Dosage: UNKNOWN, UNKNOWN
     Route: 048
  5. DYAZIDE [Concomitant]
     Indication: SYNOVIAL DISORDER
     Dosage: UNKNOWN, UNKNOWN
     Route: 048
  6. PLAQUENIL [Concomitant]
     Indication: SJOGREN'S SYNDROME
     Dosage: UNKNOWN, UNKNOWN
     Route: 048

REACTIONS (4)
  - HALLUCINATION [None]
  - NIGHTMARE [None]
  - HEADACHE [None]
  - OFF LABEL USE [None]
